FAERS Safety Report 4616414-0 (Version None)
Quarter: 2005Q1

REPORT INFORMATION
  Report Type: 
  Country: None (occurrence: None)
  Receive Date: 20050321
  Receipt Date: 20050308
  Transmission Date: 20050727
  Serious: Yes (Other)
  Sender: FDA-Public Use
  Company Number: 2005042704

PATIENT
  Sex: Female
  Weight: 88.4514 kg

DRUGS (12)
  1. NEURONTIN [Suspect]
     Indication: NERVOUSNESS
     Dosage: 600 MG (100 MG, 6 IN 1 D), ORAL
     Route: 048
  2. FUROSEMIDE [Concomitant]
  3. ASASANTIN (ACETYLSALICYLIC ACID, DIPYRIDAMOLE) [Concomitant]
  4. SERTRALINE HCL [Concomitant]
  5. AMLODIPINE BESYLATE [Concomitant]
  6. ZONISAMIDE (ZONISAMIDE) [Concomitant]
  7. LEVOTHYROXINE SODIUM [Concomitant]
  8. LOSARTAN POTASSIUM [Concomitant]
  9. CENTRUM SILVER (ASCORBIC ACID, CALCIUM, MINERALS NOS, RETINOL, TOCOPHE [Concomitant]
  10. MULTIVITAMINS (ASCORBIC ACID, ERGOCALCIFEROL, FOLIC ACID, NICOTINAMIDE [Concomitant]
  11. CALCIUM CARBONATE (CALCIUM CARBONATE) [Concomitant]
  12. DICYCLOVERINE (DICYCLOVERINE) [Concomitant]

REACTIONS (7)
  - ANAEMIA [None]
  - CATARACT OPERATION [None]
  - DYSPNOEA [None]
  - FATIGUE [None]
  - FEELING ABNORMAL [None]
  - PHARMACEUTICAL PRODUCT COMPLAINT [None]
  - VISUAL DISTURBANCE [None]
